FAERS Safety Report 8354365-9 (Version None)
Quarter: 2012Q2

REPORT INFORMATION
  Report Type: 
  Country: None (occurrence: None)
  Receive Date: 20120511
  Receipt Date: 20120508
  Transmission Date: 20120825
  Serious: Yes (Life-Threatening, Hospitalization)
  Sender: FDA-Public Use
  Company Number: GB-ABBOTT-12P-167-0922242-00

PATIENT
  Sex: Male

DRUGS (4)
  1. HUMIRA [Suspect]
     Dosage: 80MG LOADING DOSE
     Dates: end: 20120301
  2. HUMIRA [Suspect]
     Route: 058
     Dates: start: 20120201, end: 20120301
  3. HUMIRA [Suspect]
     Indication: CROHN'S DISEASE
     Dosage: 160MG LOADING DOSE
     Dates: start: 20120218, end: 20120218
  4. AZATHIOPRINE [Concomitant]
     Indication: CROHN'S DISEASE
     Route: 048
     Dates: start: 20110101, end: 20120301

REACTIONS (4)
  - BODY TEMPERATURE [None]
  - PULMONARY TUBERCULOSIS [None]
  - HEADACHE [None]
  - RESPIRATORY FAILURE [None]
